FAERS Safety Report 9561769 (Version 1)
Quarter: 2013Q3

REPORT INFORMATION
  Report Type: Spontaneous
  Country: US (occurrence: US)
  Receive Date: 20130927
  Receipt Date: 20130927
  Transmission Date: 20140515
  Serious: No
  Sender: FDA-Public Use
  Company Number: US-BIOGENIDEC-2013BI063240

PATIENT
  Age: 42 Year
  Sex: Female

DRUGS (4)
  1. TECFIDERA [Suspect]
     Indication: MULTIPLE SCLEROSIS
     Route: 048
     Dates: start: 20130606
  2. VITAMIN D3 [Concomitant]
  3. CENTRUM [Concomitant]
  4. JUNEL FE [Concomitant]

REACTIONS (3)
  - Dyspnoea [Unknown]
  - Vomiting [Unknown]
  - Gastric disorder [Unknown]
